FAERS Safety Report 7807775-X (Version None)
Quarter: 2011Q4

REPORT INFORMATION
  Report Type: 
  Country: None (occurrence: None)
  Receive Date: 20111011
  Receipt Date: 20110928
  Transmission Date: 20120403
  Serious: Yes (Hospitalization, Other)
  Sender: FDA-Public Use
  Company Number: IL-SANOFI-AVENTIS-2011SA044073

PATIENT
  Age: 85 Year
  Sex: Male
  Weight: 54 kg

DRUGS (16)
  1. ENALAPRIL MALEATE [Concomitant]
     Route: 048
  2. VITAMIN B-12 [Concomitant]
     Dosage: DOSE:1000 UNIT(S)
  3. ZODORM [Concomitant]
     Route: 048
  4. CHLORPHENIRAMINE MALEATE [Concomitant]
     Route: 048
  5. THIAMINE HCL [Concomitant]
  6. ASPIRIN [Concomitant]
     Route: 048
  7. SIMVASTATIN [Concomitant]
     Route: 048
  8. ESCITALOPRAM [Concomitant]
     Route: 048
  9. CARVEDILOL [Concomitant]
     Route: 048
  10. OXYCODONE HCL [Concomitant]
  11. OMEPRADEX [Concomitant]
  12. FUROSEMIDE [Concomitant]
     Route: 048
  13. FOLEX [Concomitant]
     Route: 048
  14. DRONEDARONE HCL [Suspect]
     Indication: ATRIAL FIBRILLATION
     Route: 048
     Dates: start: 20110124
  15. NALOXONE [Concomitant]
  16. TRAZODIL [Concomitant]
     Route: 048

REACTIONS (4)
  - PNEUMONIA [None]
  - CARDIAC FAILURE [None]
  - CARDIAC FAILURE CONGESTIVE [None]
  - RESPIRATORY TRACT INFECTION [None]
